FAERS Safety Report 7296826-X (Version None)
Quarter: 2011Q1

REPORT INFORMATION
  Report Type: 
  Country: None (occurrence: None)
  Receive Date: 20110216
  Receipt Date: 20101207
  Transmission Date: 20110831
  Serious: No
  Sender: FDA-Public Use
  Company Number: US-BAYER-2010-008553

PATIENT
  Sex: Male
  Weight: 113 kg

DRUGS (1)
  1. ALEVE (CAPLET) [Suspect]
     Indication: HEADACHE

REACTIONS (5)
  - SWELLING FACE [None]
  - OEDEMA PERIPHERAL [None]
  - HYPERSENSITIVITY [None]
  - ERYTHEMA [None]
  - PRURITUS [None]
